FAERS Safety Report 9769167 (Version 1)
Quarter: 2013Q3

REPORT INFORMATION
  Report Type: Spontaneous
  Country: FR (occurrence: None)
  Receive Date: 20130901
  Receipt Date: 20130901
  Transmission Date: 20140515
  Serious: Yes (Hospitalization, Other)
  Sender: FDA-Public Use
  Company Number: UK172108

PATIENT
  Age: 4 Year
  Sex: Female

DRUGS (11)
  1. KINERET (ANAKINRA), NOT AVAILABLE [Suspect]
     Indication: JUVENILE IDIOPATHIC ARTHRITIS
     Route: 058
     Dates: start: 20060114, end: 20060303
  2. MOPRAL (OMEPRAZOLE) (OMEPRAZOLE) [Concomitant]
  3. CORTICOSTEROID NOS (CORTICOSTEROID NOS) (CORTISTEROID NOS) [Concomitant]
  4. SOLUPRED (PREDNISOLONE) (PREDNISOLONE) [Concomitant]
  5. IMMUNOGLOBULINS (IMMUNOGLOBULINS) [Concomitant]
  6. PREDNISOLONE SODIUM SULFOBENZOATE (PREDNISOLONE METASULFOBENZOATE SODIUM) (PREDNISOLONE METASULFOBENZOATE SODIUM) [Concomitant]
  7. PHOSPHATE-SANDOZ (PHOSPHATE-SANDOZ) (SODIUM BICARBONATE, POTASSIUM BICARBONATE, SODIUM PHOSPHATE MONOBASIC  (ANHYDRATE)) [Concomitant]
  8. CALCIUM CARBONATE, COLECALCIFEROL (COLECALCIFEROL) (COLECALCIFEROL) [Concomitant]
  9. DUPHALAC (LACTULOSE) (LACTULOSE) [Concomitant]
  10. PARACETAMOL (PARACETAMOL) (PARACETAMOL) [Concomitant]
  11. CALCIUM CARBONATE, COLECALIFEROL (CALCIUM CARBONATE) (CALCIUM CARBONATE) [Concomitant]

REACTIONS (7)
  - Hepatocellular injury [None]
  - Drug-induced liver injury [None]
  - Hepatitis toxic [None]
  - Autoimmune hepatitis [None]
  - Drug-induced liver injury [None]
  - Epstein-Barr virus infection [None]
  - Neutropenia [None]
